FAERS Safety Report 9284265 (Version 2)
Quarter: 2013Q3

REPORT INFORMATION
  Report Type: Report from Study
  Country: US (occurrence: US)
  Receive Date: 20130510
  Receipt Date: 20130716
  Transmission Date: 20140515
  Serious: Yes (Other)
  Sender: FDA-Public Use
  Company Number: US-US-EMD SERONO, INC.-7209645

PATIENT
  Sex: Male

DRUGS (1)
  1. REBIF [Suspect]
     Indication: PRODUCT USED FOR UNKNOWN INDICATION
     Route: 058
     Dates: start: 20090408, end: 20130618

REACTIONS (4)
  - Demyelination [Not Recovered/Not Resolved]
  - Cat scratch disease [Unknown]
  - Central nervous system lesion [Unknown]
  - Immune system disorder [Unknown]
